FAERS Safety Report 8865988 (Version 1)
Quarter: 2012Q4

REPORT INFORMATION
  Report Type: Report from Study
  Country: US (occurrence: US)
  Receive Date: 20121025
  Receipt Date: 20121025
  Transmission Date: 20130627
  Serious: No
  Sender: FDA-Public Use
  Company Number: US-ABBOTT-12P-163-0962296-00

PATIENT
  Age: 37 Year
  Sex: Female
  Weight: 53.12 kg

DRUGS (2)
  1. LUPRON DEPOT 3.75 MG [Suspect]
     Indication: ENDOMETRIOSIS
     Dosage: Monthly
     Route: 030
     Dates: start: 20120706
  2. LUPRON DEPOT 3.75 MG [Suspect]
     Indication: OFF LABEL USE

REACTIONS (6)
  - Aphasia [Not Recovered/Not Resolved]
  - Amnesia [Not Recovered/Not Resolved]
  - Memory impairment [Not Recovered/Not Resolved]
  - Tinnitus [Not Recovered/Not Resolved]
  - Off label use [Unknown]
  - Dyspepsia [Unknown]
